FAERS Safety Report 8045316-5 (Version None)
Quarter: 2012Q1

REPORT INFORMATION
  Report Type: 
  Country: None (occurrence: None)
  Receive Date: 20120113
  Receipt Date: 20120110
  Transmission Date: 20120608
  Serious: Yes (Hospitalization, Other)
  Sender: FDA-Public Use
  Company Number: US-SHIRE-ALL1-2012-00140

PATIENT
  Sex: Female
  Weight: 63.946 kg

DRUGS (5)
  1. ADDERALL XR 10 [Suspect]
     Indication: ATTENTION DEFICIT/HYPERACTIVITY DISORDER
     Dosage: 20 MG, 2X/DAY:BID
     Route: 048
     Dates: start: 20010101, end: 20111130
  2. LEVOTHYROXINE SODIUM [Concomitant]
     Indication: PITUITARY TUMOUR
     Dosage: 1.25 MG, 1X/DAY:QD
     Route: 048
     Dates: start: 20000101
  3. HYDROCHLOROTHIAZIDE [Concomitant]
     Indication: BLOOD PRESSURE INCREASED
     Dosage: 10 MG, 1X/DAY:QD
     Route: 048
     Dates: start: 20000101
  4. REMERON [Concomitant]
     Indication: INSOMNIA
     Dosage: 45 MG, 1X/DAY:QD
     Route: 048
     Dates: end: 20111220
  5. ADDERALL XR 10 [Suspect]
     Dosage: 20 MG, 1X/DAY:QD
     Route: 048
     Dates: start: 20111201

REACTIONS (13)
  - ABNORMAL LOSS OF WEIGHT [None]
  - ABDOMINAL DISTENSION [None]
  - INAPPROPRIATE SCHEDULE OF DRUG ADMINISTRATION [None]
  - ABDOMINAL PAIN UPPER [None]
  - INTERVERTEBRAL DISC DISORDER [None]
  - RECTAL PROLAPSE [None]
  - PANIC ATTACK [None]
  - EARLY SATIETY [None]
  - MALAISE [None]
  - OVERDOSE [None]
  - OBSESSIVE-COMPULSIVE DISORDER [None]
  - BACK PAIN [None]
  - DEPRESSION [None]
